FAERS Safety Report 5278821-5 (Version None)
Quarter: 2007Q1

REPORT INFORMATION
  Report Type: 
  Country: None (occurrence: None)
  Receive Date: 20061213
  Receipt Date: 20050711
  Transmission Date: 20070707
  Serious: No
  Sender: FDA-Public Use
  Company Number: 2005UW05694

PATIENT
  Age: 41 Year
  Sex: Male
  Weight: 74.8435 kg

DRUGS (3)
  1. SEROQUEL [Suspect]
     Indication: SCHIZOPHRENIA
     Dosage: 400 MG DAILY PO
     Route: 048
     Dates: start: 20030701, end: 20050313
  2. SEROQUEL [Suspect]
     Indication: SCHIZOPHRENIA
     Dosage: 400 MG DAILY PO
     Route: 048
     Dates: end: 20050328
  3. CORTISONE ACETATE [Concomitant]

REACTIONS (1)
  - PRIAPISM [None]
